FAERS Safety Report 7808318-7 (Version None)
Quarter: 2011Q4

REPORT INFORMATION
  Report Type: 
  Country: None (occurrence: None)
  Receive Date: 20111012
  Receipt Date: 20111005
  Transmission Date: 20120403
  Serious: No
  Sender: FDA-Public Use
  Company Number: US-BIOGENIDEC-2011BI038044

PATIENT
  Sex: Male

DRUGS (2)
  1. AVONEX [Suspect]
     Indication: MULTIPLE SCLEROSIS
     Route: 030
     Dates: start: 20080411, end: 20110801
  2. AVONEX [Suspect]
     Route: 030
     Dates: start: 20010926, end: 20061010

REACTIONS (1)
  - VISUAL IMPAIRMENT [None]
